FAERS Safety Report 18414652 (Version 1)
Quarter: 2020Q4

REPORT INFORMATION
  Report Type: Spontaneous
  Country: US (occurrence: US)
  Receive Date: 20201022
  Receipt Date: 20201022
  Transmission Date: 20210114
  Serious: Yes (Other)
  Sender: FDA-Public Use
  Company Number: None

PATIENT
  Age: 69 Year
  Sex: Male
  Weight: 49.9 kg

DRUGS (1)
  1. ALIROCUMAB (ALIROCUMAB 75MG/ML INJ, PEN, 1ML) [Suspect]
     Active Substance: ALIROCUMAB
     Indication: HYPERLIPIDAEMIA
     Dosage: ?          OTHER DOSE:1 UNIT;?
     Route: 058
     Dates: start: 20200116, end: 20200316

REACTIONS (3)
  - Myalgia [None]
  - Walking aid user [None]
  - Arthralgia [None]

NARRATIVE: CASE EVENT DATE: 20200409
